FAERS Safety Report 8823959 (Version 1)
Quarter: 2012Q4

REPORT INFORMATION
  Report Type: 
  Country: US (occurrence: US)
  Receive Date: 20121003
  Receipt Date: 20121003
  Transmission Date: 20130627
  Serious: Yes (Other)
  Sender: FDA-Public Use
  Company Number: US-PFIZER INC-2012243151

PATIENT
  Age: 57 Year
  Sex: Female
  Weight: 74.4 kg

DRUGS (5)
  1. LIPITOR [Suspect]
     Indication: BLOOD CHOLESTEROL INCREASED
     Dosage: 20 mg, 1x/day
     Route: 048
  2. TRILIPIX [Concomitant]
     Dosage: 135 mg, UNK
  3. BENICAR [Concomitant]
     Dosage: 40 mg, UNK
  4. AMLODIPINE/BENAZEPRIL [Concomitant]
     Dosage: 5 mg/10 mg, UNK
  5. BABY ASPIRIN [Concomitant]
     Dosage: UNK

REACTIONS (1)
  - Back disorder [Not Recovered/Not Resolved]
